FAERS Safety Report 8777300 (Version 1)
Quarter: 2012Q4

REPORT INFORMATION
  Report Type: 
  Country: US (occurrence: US)
  Receive Date: 20120911
  Receipt Date: 20120911
  Transmission Date: 20130627
  Serious: Yes (Other)
  Sender: FDA-Public Use
  Company Number: US-GLAXOSMITHKLINE-A0992376A

PATIENT
  Age: 23 Year
  Sex: Female

DRUGS (2)
  1. ALLI [Suspect]
     Indication: WEIGHT LOSS DIET
     Route: 048
     Dates: start: 20120830, end: 20120904
  2. NICORETTE [Concomitant]
     Route: 002

REACTIONS (7)
  - Rectal haemorrhage [Not Recovered/Not Resolved]
  - Haematochezia [Not Recovered/Not Resolved]
  - Gastric disorder [Not Recovered/Not Resolved]
  - Hypersensitivity [Not Recovered/Not Resolved]
  - Oropharyngeal pain [Not Recovered/Not Resolved]
  - Vomiting [Not Recovered/Not Resolved]
  - Hyperchlorhydria [Not Recovered/Not Resolved]
